FAERS Safety Report 25468684 (Version 2)
Quarter: 2025Q2

REPORT INFORMATION
  Report Type: Spontaneous
  Country: FR (occurrence: FR)
  Receive Date: 20250623
  Receipt Date: 20250627
  Transmission Date: 20250717
  Serious: Yes (Death)
  Sender: OTSUKA
  Company Number: None

PATIENT
  Age: 20 Year
  Sex: Male

DRUGS (4)
  1. ABILIFY [Suspect]
     Active Substance: ARIPIPRAZOLE
     Indication: Mania
     Dosage: 30 MG, QD
     Route: 065
     Dates: start: 20250525, end: 20250531
  2. DIAZEPAM [Suspect]
     Active Substance: DIAZEPAM
     Indication: Mania
     Dosage: 30 MG, QD
     Route: 065
     Dates: start: 20250525, end: 20250531
  3. CYAMEMAZINE [Suspect]
     Active Substance: CYAMEMAZINE
     Indication: Mania
     Dosage: 400 MG, QD
     Route: 065
     Dates: start: 20250525, end: 20250531
  4. LEVOMEPROMAZINE HYDROCHLORIDE [Suspect]
     Active Substance: LEVOMEPROMAZINE HYDROCHLORIDE
     Indication: Mania
     Route: 065
     Dates: start: 202505, end: 20250531

REACTIONS (1)
  - Cardio-respiratory arrest [Fatal]

NARRATIVE: CASE EVENT DATE: 20250531
